FAERS Safety Report 7499550-3 (Version None)
Quarter: 2011Q2

REPORT INFORMATION
  Report Type: 
  Country: None (occurrence: None)
  Receive Date: 20110524
  Receipt Date: 20110512
  Transmission Date: 20111010
  Serious: Yes (Hospitalization)
  Sender: FDA-Public Use
  Company Number: JP-SANOFI-AVENTIS-2011SA029953

PATIENT
  Age: 59 Year
  Sex: Female

DRUGS (10)
  1. OXALIPLATIN [Suspect]
     Indication: RECTAL CANCER METASTATIC
     Route: 042
     Dates: start: 20101126, end: 20101126
  2. LEUCOVORIN CALCIUM [Concomitant]
     Dates: start: 20101126, end: 20110121
  3. FLUOROURACIL [Suspect]
     Indication: RECTAL CANCER METASTATIC
     Route: 042
     Dates: start: 20101126, end: 20101126
  4. IRINOTECAN HCL [Suspect]
     Indication: RECTAL CANCER METASTATIC
     Route: 042
     Dates: start: 20110210, end: 20110210
  5. OXALIPLATIN [Suspect]
     Route: 042
     Dates: start: 20110121, end: 20110121
  6. IRINOTECAN HCL [Suspect]
     Route: 042
     Dates: start: 20110225, end: 20110225
  7. AVASTIN [Suspect]
     Route: 042
     Dates: start: 20110225, end: 20110225
  8. AVASTIN [Suspect]
     Indication: RECTAL CANCER METASTATIC
     Route: 042
     Dates: start: 20101210, end: 20101210
  9. FLUOROURACIL [Suspect]
     Route: 042
     Dates: start: 20110121, end: 20110121
  10. TS-1 [Suspect]
     Indication: RECTAL CANCER METASTATIC
     Route: 048
     Dates: start: 20110210, end: 20110223

REACTIONS (2)
  - ANAL FISTULA [None]
  - PERINEAL FISTULA [None]
